FAERS Safety Report 14474542 (Version 1)
Quarter: 2018Q1

REPORT INFORMATION
  Report Type: Spontaneous
  Country: FR (occurrence: FR)
  Receive Date: 20180201
  Receipt Date: 20180201
  Transmission Date: 20180509
  Serious: Yes (Other)
  Sender: FDA-Public Use
  Company Number: FR-ASTELLAS-2018US005477

PATIENT
  Age: 14 Year
  Sex: Female

DRUGS (2)
  1. TACROLIMUS. [Suspect]
     Active Substance: TACROLIMUS
     Indication: ACUTE GRAFT VERSUS HOST DISEASE
     Dosage: UNK UNK, UNKNOWN FREQ.
     Route: 065
  2. INFLIXIMAB [Concomitant]
     Active Substance: INFLIXIMAB
     Indication: GRAFT VERSUS HOST DISEASE
     Dosage: UNK UNK, UNKNOWN FREQ.
     Route: 065

REACTIONS (10)
  - Visceroptosis [Recovered/Resolved]
  - Ileal ulcer [Recovered/Resolved]
  - Fibrosis [Recovered/Resolved]
  - Off label use [Unknown]
  - Gastrointestinal wall thickening [Unknown]
  - Gastrointestinal wall thickening [Recovered/Resolved]
  - Lipomatosis [Recovered/Resolved]
  - Mucosal ulceration [Recovered/Resolved]
  - Ileal stenosis [Recovered/Resolved]
  - Abdominal pain [Recovered/Resolved]
